FAERS Safety Report 17866919 (Version 8)
Quarter: 2021Q1

REPORT INFORMATION
  Report Type: Spontaneous
  Country: US (occurrence: US)
  Receive Date: 20200605
  Receipt Date: 20210204
  Transmission Date: 20210419
  Serious: No
  Sender: FDA-Public Use
  Company Number: US-FRESENIUS KABI-FK202005571

PATIENT
  Age: 29 Year
  Sex: Female
  Weight: 79 kg

DRUGS (14)
  1. CETIRIZINE [Concomitant]
     Active Substance: CETIRIZINE HYDROCHLORIDE
     Indication: SEASONAL ALLERGY
     Dosage: STILL ONGOING
     Route: 065
     Dates: start: 20200530
  2. CARBOPLATIN (MANUFACTURER UNKNOWN) [Suspect]
     Active Substance: CARBOPLATIN
     Dosage: AS A SUBSEQUENT SYSTEMIC CANCER THERAPY
     Route: 065
     Dates: start: 20200622, end: 20200928
  3. BRIMONIDINE TARTRATE. [Concomitant]
     Active Substance: BRIMONIDINE TARTRATE
     Indication: PROPHYLAXIS
     Dosage: (0.2 PERCENT)
     Route: 065
     Dates: start: 20200511, end: 20200511
  4. DIPHENHYDRAMINE. [Concomitant]
     Active Substance: DIPHENHYDRAMINE
     Indication: SEASONAL ALLERGY
     Dosage: STILL ONGOING
     Route: 065
     Dates: start: 20200530
  5. SULFAMETHOXAZOLE/TRIMETHOPRIM [Concomitant]
     Active Substance: SULFAMETHOXAZOLE\TRIMETHOPRIM
     Indication: DYSURIA
     Dosage: STILL ONGOING
     Route: 065
     Dates: start: 20200518
  6. OFLOXACIN. [Concomitant]
     Active Substance: OFLOXACIN
     Indication: PROPHYLAXIS
     Route: 065
     Dates: start: 20200528, end: 20200612
  7. TISOTUMAB VEDOTIN. [Suspect]
     Active Substance: TISOTUMAB VEDOTIN
     Indication: CERVIX CARCINOMA
     Route: 041
     Dates: start: 20200511, end: 20200604
  8. MACROGOL 400 [Concomitant]
     Active Substance: POLYETHYLENE GLYCOL 400
     Indication: PROPHYLAXIS
     Route: 065
     Dates: start: 20200511, end: 20200517
  9. PARACETAMOL/DIPHENHYDRAMINE HYDROCHLORIDE [Concomitant]
     Indication: INSOMNIA
     Dosage: ONGOING
     Route: 065
     Dates: start: 20191001
  10. TROPICAMIDE. [Concomitant]
     Active Substance: TROPICAMIDE
     Indication: PROPHYLAXIS
     Route: 065
     Dates: start: 20200429
  11. CARBOPLATIN (MANUFACTURER UNKNOWN) [Suspect]
     Active Substance: CARBOPLATIN
     Indication: CERVIX CARCINOMA
     Dosage: 5 AUC,1Q3W
     Route: 041
     Dates: start: 20200511, end: 20200604
  12. MACROGOL 400 [Concomitant]
     Active Substance: POLYETHYLENE GLYCOL 400
     Route: 065
     Dates: start: 20200518, end: 20200612
  13. MACROGOL 400 [Concomitant]
     Active Substance: POLYETHYLENE GLYCOL 400
     Dosage: STILL ONGOING
     Route: 065
     Dates: start: 20200613
  14. DEXAMETHASONE. [Concomitant]
     Active Substance: DEXAMETHASONE
     Indication: PROPHYLAXIS
     Route: 065
     Dates: start: 20200511, end: 20200513

REACTIONS (1)
  - Dry eye [Recovered/Resolved]

NARRATIVE: CASE EVENT DATE: 20200518
